FAERS Safety Report 23228860 (Version 1)
Quarter: 2023Q4

REPORT INFORMATION
  Report Type: Spontaneous
  Country: US (occurrence: None)
  Receive Date: 20231126
  Receipt Date: 20231126
  Transmission Date: 20240110
  Serious: No
  Sender: FDA-Public Use
  Company Number: US-ROCHE-3206944

PATIENT
  Age: 55 Year
  Sex: Female

DRUGS (3)
  1. HERCEPTIN [Suspect]
     Active Substance: TRASTUZUMAB
     Indication: Product used for unknown indication
     Route: 065
  2. TUKYSA [Suspect]
     Active Substance: TUCATINIB
     Indication: Breast cancer female
     Route: 065
  3. CAPECITABINE [Suspect]
     Active Substance: CAPECITABINE
     Indication: Product used for unknown indication
     Route: 048

REACTIONS (14)
  - Stomatitis [Unknown]
  - Feeding disorder [Unknown]
  - Diarrhoea [Unknown]
  - Sensory disturbance [Unknown]
  - Neuropathy peripheral [Unknown]
  - Blister [Unknown]
  - Fatigue [Unknown]
  - Therapeutic response unexpected [Unknown]
  - Hair growth abnormal [Unknown]
  - Drug interaction [Unknown]
  - Constipation [Unknown]
  - Oedema [Unknown]
  - Palmar-plantar erythrodysaesthesia syndrome [Unknown]
  - COVID-19 [Unknown]

NARRATIVE: CASE EVENT DATE: 20221201
